FAERS Safety Report 8894394 (Version 1)
Quarter: 2012Q4

REPORT INFORMATION
  Report Type: 
  Country: US (occurrence: US)
  Receive Date: 20121107
  Receipt Date: 20121107
  Transmission Date: 20130627
  Serious: No
  Sender: FDA-Public Use
  Company Number: US-AMGEN-USASP2011059709

PATIENT
  Sex: Male

DRUGS (14)
  1. ENBREL [Suspect]
     Indication: PRODUCT USED FOR UNKNOWN INDICATION
     Dosage: 50 mg, qwk
  2. CELEBREX [Concomitant]
     Dosage: 100 mg, UNK
  3. HYDROCODONE [Concomitant]
  4. METHOCARBAMOL [Concomitant]
     Dosage: 500 mg, UNK
  5. ASPIRIN [Concomitant]
     Dosage: 81 mg, UNK
  6. VITAMIN B 12 [Concomitant]
     Dosage: 100 mug, UNK
  7. DIOVAN A [Concomitant]
     Dosage: 320 mg, UNK
  8. ALPRAZOLAM [Concomitant]
     Dosage: 3 mg, UNK
  9. NIASPAN [Concomitant]
     Dosage: 500 mg, UNK
  10. METOPROLOL [Concomitant]
     Dosage: 25 mg, UNK
  11. ANASTROZOLE [Concomitant]
     Dosage: 1 mg, UNK
  12. OMEPRAZOLE [Concomitant]
     Dosage: 20 mg, UNK
  13. DICLOFENAC [Concomitant]
     Dosage: 75 mg, UNK
  14. CYMBALTA [Concomitant]
     Dosage: 20 mg, UNK

REACTIONS (2)
  - Oral mucosal exfoliation [Unknown]
  - Oral mucosal blistering [Unknown]
